FAERS Safety Report 5598439-4 (Version None)
Quarter: 2008Q1

REPORT INFORMATION
  Report Type: 
  Country: None (occurrence: None)
  Receive Date: 20080122
  Receipt Date: 20080116
  Transmission Date: 20080703
  Serious: Yes (Hospitalization)
  Sender: FDA-Public Use
  Company Number: FR-ASTRAZENECA-2008CG00107

PATIENT
  Age: 15066 Day
  Sex: Male

DRUGS (3)
  1. MOPRAL [Suspect]
     Route: 048
     Dates: start: 20071121, end: 20071123
  2. KETOPROFEN [Suspect]
     Indication: SCIATICA
     Route: 048
     Dates: start: 20071121, end: 20071123
  3. DI-ANTALVIC [Concomitant]
     Indication: SCIATICA
     Dates: start: 20071121, end: 20071123

REACTIONS (1)
  - TUBULOINTERSTITIAL NEPHRITIS [None]
